FAERS Safety Report 9714049 (Version 3)
Quarter: 2015Q3

REPORT INFORMATION
  Report Type: Spontaneous
  Country: US (occurrence: US)
  Receive Date: 20131126
  Receipt Date: 20150803
  Transmission Date: 20151125
  Serious: No
  Sender: FDA-Public Use
  Company Number: US-GILEAD-2008-0018597

PATIENT
  Age: 76 Year
  Sex: Male
  Weight: 94.8 kg

DRUGS (14)
  1. AMIODARONE [Concomitant]
     Active Substance: AMIODARONE
     Indication: ARRHYTHMIA
  2. LESCOL [Concomitant]
     Active Substance: FLUVASTATIN SODIUM
  3. LASIX [Concomitant]
     Active Substance: FUROSEMIDE
  4. DUONEB [Suspect]
     Active Substance: ALBUTEROL SULFATE\IPRATROPIUM BROMIDE
  5. ZAROXOLYN [Suspect]
     Active Substance: METOLAZONE
  6. ADVAIR HFA [Concomitant]
     Active Substance: FLUTICASONE PROPIONATE\SALMETEROL XINAFOATE
  7. LANTUS [Concomitant]
     Active Substance: INSULIN GLARGINE
  8. COREG [Concomitant]
     Active Substance: CARVEDILOL
  9. SPIRIVA [Suspect]
     Active Substance: TIOTROPIUM BROMIDE MONOHYDRATE
  10. DIGOXIN. [Concomitant]
     Active Substance: DIGOXIN
  11. LETAIRIS [Suspect]
     Active Substance: AMBRISENTAN
     Indication: PULMONARY ARTERIAL HYPERTENSION
     Route: 048
     Dates: start: 20080924, end: 20081014
  12. K-DUR [Concomitant]
     Active Substance: POTASSIUM CHLORIDE
  13. COUMADIN [Concomitant]
     Active Substance: WARFARIN SODIUM
  14. AVAPRO [Concomitant]
     Active Substance: IRBESARTAN

REACTIONS (1)
  - Hepatic enzyme increased [None]

NARRATIVE: CASE EVENT DATE: 20081014
